FAERS Safety Report 4975672-3 (Version None)
Quarter: 2006Q2

REPORT INFORMATION
  Report Type: 
  Country: None (occurrence: None)
  Receive Date: 20060411
  Receipt Date: 20060327
  Transmission Date: 20061013
  Serious: Yes (Other)
  Sender: FDA-Public Use
  Company Number: 2006-050 (C)

PATIENT
  Age: 85 Year
  Sex: Female

DRUGS (2)
  1. CITALOPRAM [Suspect]
  2. LINEZOLID [Suspect]
     Indication: OSTEOMYELITIS

REACTIONS (1)
  - SEROTONIN SYNDROME [None]
